FAERS Safety Report 5805369-9 (Version None)
Quarter: 2008Q3

REPORT INFORMATION
  Report Type: 
  Country: None (occurrence: None)
  Receive Date: 20080709
  Receipt Date: 20080709
  Transmission Date: 20090109
  Serious: Yes (Hospitalization)
  Sender: FDA-Public Use
  Company Number: None

PATIENT
  Sex: Female
  Weight: 51.7101 kg

DRUGS (1)
  1. RHOPHYLAC [Suspect]
     Indication: INJECTION
     Dosage: 1 VIAL ONCE IM
     Route: 030
     Dates: start: 20080705, end: 20080705

REACTIONS (8)
  - ARTHRALGIA [None]
  - ASTHENIA [None]
  - DISORIENTATION [None]
  - DYSARTHRIA [None]
  - INJECTION SITE ERYTHEMA [None]
  - INJECTION SITE NODULE [None]
  - VISION BLURRED [None]
  - WHITE BLOOD CELL COUNT INCREASED [None]
